FAERS Safety Report 21262988 (Version 1)
Quarter: 2022Q3

REPORT INFORMATION
  Report Type: Spontaneous
  Country: FR (occurrence: FR)
  Receive Date: 20220828
  Receipt Date: 20220828
  Transmission Date: 20221027
  Serious: Yes (Hospitalization)
  Sender: FDA-Public Use
  Company Number: None

PATIENT
  Age: 60 Year
  Sex: Male

DRUGS (1)
  1. RITUXIMAB [Suspect]
     Active Substance: RITUXIMAB
     Indication: Non-Hodgkin^s lymphoma
     Dosage: THERAPY STARTED ON 06/JUL/2020; 375 MG/M2 SOIT 745 MG
     Route: 065
     Dates: start: 20200706

REACTIONS (1)
  - Organising pneumonia [Recovering/Resolving]
